FAERS Safety Report 10375834 (Version 1)
Quarter: 2014Q1

REPORT INFORMATION
  Report Type: Spontaneous
  Country: US (occurrence: None)
  Receive Date: 20140306
  Receipt Date: 20140306
  Transmission Date: 20141002
  Serious: Yes (Disabling, Other)
  Sender: FDA-Public Use
  Company Number: 163-21880-13040917

PATIENT
  Age: 73 Year
  Sex: Male
  Weight: 110.68 kg

DRUGS (16)
  1. REVLIMID (LENALIDOMIDE) (CAPSULES) [Suspect]
     Indication: PLASMA CELL MYELOMA
     Route: 048
     Dates: start: 201301
  2. CELEBREX (CELECOXIB) [Concomitant]
  3. CITRUS CALCIUM + VITAMIN D (ASCORBIC ACID W/ CALCIUM/VITAMIN D NOS) [Concomitant]
  4. CLOBETASOL (CLOBETASOL) [Concomitant]
  5. PROPIONATE (SODIUM PROPIONATE) [Concomitant]
  6. DEXAMETHASONE [Concomitant]
  7. IRON [Concomitant]
  8. ISOSORBIDE MONONITRATE [Concomitant]
  9. LYRICA (PREGABALIN) [Concomitant]
  10. METHENAMINE HIPPURATE [Concomitant]
  11. METOPROLOL [Concomitant]
  12. MINOCYCLIN [Concomitant]
  13. MORPHINE SULFATE [Concomitant]
  14. PERCOCET (OXYCOCET) [Concomitant]
  15. ZOCOR (SIMVASTATIN) [Suspect]
  16. ZOMETA (ZOLEDRONIC ACID) [Concomitant]

REACTIONS (1)
  - Platelet count decreased [None]
